FAERS Safety Report 9822035 (Version 1)
Quarter: 2020Q3

REPORT INFORMATION
  Report Type: Spontaneous
  Country: FR (occurrence: None)
  Receive Date: 20140115
  Receipt Date: 20140115
  Transmission Date: 20201104
  Serious: Yes (Life-Threatening, Hospitalization)
  Sender: FDA-Public Use
  Company Number: PR-AE13-001220

PATIENT
  Age: 31 Year
  Sex: Female

DRUGS (18)
  1. COAGULATION FACTOR VII HUMAN [Suspect]
     Active Substance: COAGULATION FACTOR VII HUMAN
     Indication: THIRD STAGE POSTPARTUM HAEMORRHAGE
     Route: 042
     Dates: start: 20120108, end: 20120108
  2. SUXAMETHONIUM [Suspect]
     Active Substance: SUCCINYLCHOLINE
     Indication: ENDOTRACHEAL INTUBATION
     Route: 042
     Dates: start: 20120108, end: 20120108
  3. CIMETIDINE. [Suspect]
     Active Substance: CIMETIDINE
     Indication: SPINAL ANAESTHESIA
     Route: 048
     Dates: start: 20120108, end: 20120108
  4. SEVOFLURANE. [Suspect]
     Active Substance: SEVOFLURANE
     Indication: ANAESTHESIA
     Dosage: 1 ML / UNK / INHALED
     Route: 055
     Dates: start: 20120108, end: 20120108
  5. EPHEDRINE. [Suspect]
     Active Substance: EPHEDRINE
     Indication: SPINAL ANAESTHESIA
     Route: 042
     Dates: start: 20120108, end: 20120108
  6. BUPIVACAINE. [Suspect]
     Active Substance: BUPIVACAINE
     Indication: SPINAL ANAESTHESIA
     Route: 008
     Dates: start: 20120108, end: 20120108
  7. PHENYLEPHRINE HCL [Suspect]
     Active Substance: PHENYLEPHRINE HYDROCHLORIDE
     Indication: PRODUCT USED FOR UNKNOWN INDICATION
     Dates: start: 20120108, end: 20120108
  8. CARBETOCIN [Suspect]
     Active Substance: CARBETOCIN
     Indication: UTERINE ATONY
     Route: 042
     Dates: start: 20120108, end: 20120108
  9. SULPROSTONE [Suspect]
     Active Substance: SULPROSTONE
     Indication: UTERINE ATONY
     Route: 042
     Dates: start: 20120108, end: 20120108
  10. LACTATED RINGER^S INJ. [Concomitant]
  11. ATRACURIUM BESYLATE. [Suspect]
     Active Substance: ATRACURIUM BESYLATE
     Indication: ANAESTHESIA
     Route: 042
     Dates: start: 20120108, end: 20120108
  12. CEPHAZOLIN [Suspect]
     Active Substance: CEFAZOLIN
     Indication: ANTIBIOTIC PROPHYLAXIS
     Route: 042
     Dates: start: 20120108, end: 20120108
  13. SUFENTANIL CITRATE. [Suspect]
     Active Substance: SUFENTANIL CITRATE
     Indication: PRODUCT USED FOR UNKNOWN INDICATION
     Dosage: 2.5 MCG / UNK /  UNKNOWN
     Dates: start: 20120108, end: 20120108
  14. ETOMIDATE. [Suspect]
     Active Substance: ETOMIDATE
     Dates: start: 20120108, end: 20120108
  15. PLASMAFUSION HES [Concomitant]
  16. TRANEXAMIC ACID. [Suspect]
     Active Substance: TRANEXAMIC ACID
     Indication: POSTPARTUM HAEMORRHAGE
     Route: 042
     Dates: start: 20120108, end: 20120108
  17. FIBRINOGEN [Suspect]
     Active Substance: FIBRINOGEN HUMAN
     Indication: THIRD STAGE POSTPARTUM HAEMORRHAGE
     Route: 042
     Dates: start: 20120108, end: 20120108
  18. PROPOFOL. [Suspect]
     Active Substance: PROPOFOL
     Indication: ANAESTHESIA
     Route: 042
     Dates: start: 20120108

REACTIONS (13)
  - Oedema peripheral [None]
  - Placenta accreta [None]
  - Shock haemorrhagic [None]
  - Acute kidney injury [None]
  - Respiratory failure [None]
  - Uterine atony [None]
  - Postpartum haemorrhage [None]
  - Anaemia [None]
  - Thrombocytopenia [None]
  - Pyrexia [None]
  - Renal tubular necrosis [None]
  - Coagulopathy [None]
  - Abdominal distension [None]

NARRATIVE: CASE EVENT DATE: 20120109
